FAERS Safety Report 15907406 (Version 1)
Quarter: 2019Q1

REPORT INFORMATION
  Report Type: Report from Study
  Country: US (occurrence: US)
  Receive Date: 20190204
  Receipt Date: 20190204
  Transmission Date: 20190417
  Serious: Yes (Hospitalization)
  Sender: FDA-Public Use
  Company Number: US-EXELIXIS-CABO-19018505

PATIENT
  Sex: Male
  Weight: 74.83 kg

DRUGS (1)
  1. CABOMETYX [Suspect]
     Active Substance: CABOZANTINIB S-MALATE
     Indication: RENAL CANCER
     Dosage: 40 MG, QD (IN THE MORNING ON AN EMPTY STOMACH)
     Route: 048
     Dates: start: 20181128

REACTIONS (1)
  - Transient ischaemic attack [Unknown]
